FAERS Safety Report 9009944 (Version 1)
Quarter: 2013Q1

REPORT INFORMATION
  Report Type: Spontaneous
  Country: US (occurrence: US)
  Receive Date: 20130111
  Receipt Date: 20130111
  Transmission Date: 20140127
  Serious: Yes (Hospitalization, Other)
  Sender: FDA-Public Use
  Company Number: CHPA2013US000595

PATIENT
  Age: 51 Year
  Sex: Male

DRUGS (1)
  1. MAGNESIUM ALUMINUM SILICATE [Suspect]
     Indication: SCIATICA
     Dosage: 2 TABLETS AS NEEDED
     Route: 048
     Dates: end: 201212

REACTIONS (3)
  - Sciatica [Recovered/Resolved]
  - Mobility decreased [Recovered/Resolved]
  - Off label use [Unknown]
